FAERS Safety Report 19320799 (Version 2)
Quarter: 2022Q1

REPORT INFORMATION
  Report Type: Report from Study
  Country: US (occurrence: US)
  Receive Date: 20210527
  Receipt Date: 20220315
  Transmission Date: 20220423
  Serious: Yes (Hospitalization)
  Sender: FDA-Public Use
  Company Number: US-NOVARTISPH-NVSC2020US266135

PATIENT
  Age: 56 Year
  Sex: Female
  Weight: 50 kg

DRUGS (28)
  1. DIOVAN [Suspect]
     Active Substance: VALSARTAN
     Indication: Cardiac failure acute
     Dosage: CODE NOT BROKEN
     Route: 048
     Dates: start: 20200911, end: 20200911
  2. SACUBITRIL\VALSARTAN [Suspect]
     Active Substance: SACUBITRIL\VALSARTAN
     Indication: Cardiac failure acute
     Dosage: CODE NOT BROKEN
     Route: 048
     Dates: start: 20200911, end: 20200911
  3. INVESTIGATIONAL PRODUCT [Suspect]
     Active Substance: INVESTIGATIONAL PRODUCT
     Indication: Cardiac failure acute
     Dosage: CODE NOT BROKEN
     Route: 048
     Dates: start: 20200911, end: 20200911
  4. DIOVAN [Suspect]
     Active Substance: VALSARTAN
     Dosage: CODE NOT BROKEN
     Route: 048
     Dates: start: 20201006
  5. SACUBITRIL\VALSARTAN [Suspect]
     Active Substance: SACUBITRIL\VALSARTAN
     Dosage: CODE NOT BROKEN
     Route: 048
     Dates: start: 20201006
  6. INVESTIGATIONAL PRODUCT [Suspect]
     Active Substance: INVESTIGATIONAL PRODUCT
     Dosage: CODE NOT BROKEN
     Route: 048
     Dates: start: 20201006
  7. ISOSORBIDE MONONITRATE [Concomitant]
     Active Substance: ISOSORBIDE MONONITRATE
     Indication: Hypertension
     Dosage: UNK
     Route: 065
     Dates: start: 20200101, end: 20201005
  8. ASPIRIN [Concomitant]
     Active Substance: ASPIRIN
     Indication: Coronary artery disease
     Dosage: UNK
     Route: 065
     Dates: start: 20150114
  9. INSULIN GLARGINE [Concomitant]
     Active Substance: INSULIN GLARGINE
     Indication: Diabetes mellitus
     Dosage: UNK
     Route: 065
     Dates: start: 20200827
  10. METOPROLOL SUCCINATE [Concomitant]
     Active Substance: METOPROLOL SUCCINATE
     Indication: Cardiac failure
     Dosage: UNK
     Route: 065
     Dates: start: 20200827, end: 20201005
  11. NITROGLYCERIN [Concomitant]
     Active Substance: NITROGLYCERIN
     Indication: Angina pectoris
     Dosage: UNK
     Route: 065
     Dates: start: 20200827
  12. POTASSIUM CHLORIDE [Concomitant]
     Active Substance: POTASSIUM CHLORIDE
     Indication: General physical condition
     Dosage: UNK
     Route: 065
     Dates: start: 20190626
  13. ROSUVASTATIN [Concomitant]
     Active Substance: ROSUVASTATIN
     Indication: Hyperlipidaemia
     Dosage: UNK
     Route: 065
     Dates: start: 20190626
  14. VITAMIN D [Concomitant]
     Active Substance: VITAMIN D NOS
     Indication: General physical condition
     Dosage: UNK
     Route: 065
     Dates: start: 20171017
  15. PRASUGREL [Concomitant]
     Active Substance: PRASUGREL
     Indication: Coronary artery disease
     Dosage: UNK
     Route: 065
     Dates: start: 20200712
  16. FUROSEMIDE [Concomitant]
     Active Substance: FUROSEMIDE
     Indication: Cardiac failure
     Dosage: UNK
     Route: 065
     Dates: start: 20190626, end: 20200930
  17. FUROSEMIDE [Concomitant]
     Active Substance: FUROSEMIDE
     Dosage: UNK
     Route: 065
     Dates: start: 20200930, end: 20201003
  18. INSULIN ASPART [Concomitant]
     Active Substance: INSULIN ASPART
     Indication: Diabetes mellitus
     Dosage: UNK
     Route: 065
     Dates: start: 20190626
  19. CLONAZEPAM [Concomitant]
     Active Substance: CLONAZEPAM
     Indication: Depression
     Dosage: UNK
     Route: 065
     Dates: start: 20200820
  20. DULOXETINE [Concomitant]
     Active Substance: DULOXETINE
     Indication: Post-traumatic stress disorder
     Dosage: UNK
     Route: 065
     Dates: start: 20190626
  21. DULOXETINE [Concomitant]
     Active Substance: DULOXETINE
     Indication: Neuropathy peripheral
  22. EVOLOCUMAB [Concomitant]
     Active Substance: EVOLOCUMAB
     Indication: Hyperlipidaemia
     Dosage: UNK
     Route: 065
     Dates: start: 20200115
  23. EXENATIDE [Concomitant]
     Active Substance: EXENATIDE
     Indication: Diabetes mellitus
     Dosage: UNK
     Route: 065
     Dates: start: 20190918
  24. EZETIMIBE [Concomitant]
     Active Substance: EZETIMIBE
     Indication: Hyperlipidaemia
     Dosage: UNK
     Route: 065
     Dates: start: 20151124
  25. GABAPENTIN [Concomitant]
     Active Substance: GABAPENTIN
     Indication: Neuropathy peripheral
     Dosage: UNK
     Route: 065
     Dates: start: 20200713
  26. LASIX [Concomitant]
     Active Substance: FUROSEMIDE
     Indication: Hypervolaemia
     Dosage: 40MG -80MG
     Route: 065
  27. LASIX [Concomitant]
     Active Substance: FUROSEMIDE
     Indication: Cardiac failure
     Dosage: UNK
     Route: 065
     Dates: start: 20190626, end: 20200930
  28. EPINEPHRINE [Concomitant]
     Active Substance: EPINEPHRINE
     Indication: Cardiogenic shock
     Dosage: UNK
     Route: 065
     Dates: start: 20200930, end: 20200930

REACTIONS (1)
  - Cardiac failure congestive [Recovered/Resolved]

NARRATIVE: CASE EVENT DATE: 20200930
